FAERS Safety Report 15668167 (Version 1)
Quarter: 2018Q4

REPORT INFORMATION
  Report Type: Report from Study
  Country: None (occurrence: RO)
  Receive Date: 20181129
  Receipt Date: 20181129
  Transmission Date: 20190205
  Serious: Yes (Other)
  Sender: FDA-Public Use
  Company Number: RO-ABBVIE-18K-135-2568024-00

PATIENT
  Age: 74 Year
  Sex: Male

DRUGS (1)
  1. HUMIRA [Suspect]
     Active Substance: ADALIMUMAB
     Indication: RHEUMATOID ARTHRITIS
     Route: 058
     Dates: start: 20130515, end: 20180801

REACTIONS (3)
  - Mycobacterium tuberculosis complex test positive [Unknown]
  - Hepatitis B surface antibody positive [Unknown]
  - Hepatitis B core antibody positive [Unknown]

NARRATIVE: CASE EVENT DATE: 20180718
